FAERS Safety Report 4495653-6 (Version None)
Quarter: 2004Q4

REPORT INFORMATION
  Report Type: 
  Country: None (occurrence: None)
  Receive Date: 20041103
  Receipt Date: 20041018
  Transmission Date: 20050328
  Serious: Yes (Death)
  Sender: FDA-Public Use
  Company Number: 2004-BP-10137RO

PATIENT
  Age: 33 Year
  Sex: Male

DRUGS (2)
  1. ROXICET TABLETS (OXYCODONE 5 MG AND ACETAMINOPHEN 325 MG TABLETS USP) [Suspect]
     Indication: PAIN
  2. CROTALUS VIRIDIS LUTOSUS (SNAKE VENOM ANTISERUM) [Suspect]
     Indication: SNAKE BITE

REACTIONS (9)
  - BRAIN OEDEMA [None]
  - BRONCHIAL OBSTRUCTION [None]
  - DEPRESSED LEVEL OF CONSCIOUSNESS [None]
  - DRUG TOXICITY [None]
  - INCREASED BRONCHIAL SECRETION [None]
  - PULMONARY OEDEMA [None]
  - RESPIRATORY ARREST [None]
  - SNORING [None]
  - TRACHEAL OBSTRUCTION [None]
